FAERS Safety Report 4322993-3 (Version None)
Quarter: 2004Q1

REPORT INFORMATION
  Report Type: 
  Country: None (occurrence: None)
  Receive Date: 20040322
  Receipt Date: 20040308
  Transmission Date: 20041129
  Serious: Yes (Hospitalization)
  Sender: FDA-Public Use
  Company Number: MK200312-0150-2

PATIENT
  Age: 82 Year
  Sex: Female

DRUGS (7)
  1. ANAFRANIL [Suspect]
  2. ADALAT SLOW RELEASE [Concomitant]
  3. ETHYL LOFLAZEPATE [Concomitant]
  4. MILNACIPRAN HCL [Concomitant]
  5. NORVASC [Concomitant]
  6. SEROQUEL [Concomitant]
  7. SYMMETREL [Concomitant]

REACTIONS (5)
  - AUTONOMIC NEUROPATHY [None]
  - DEMENTIA [None]
  - DEPRESSION [None]
  - MARKEDLY REDUCED DIETARY INTAKE [None]
  - PARKINSONISM [None]
